FAERS Safety Report 21229996 (Version 2)
Quarter: 2022Q3

REPORT INFORMATION
  Report Type: Spontaneous
  Country: IT (occurrence: IT)
  Receive Date: 20220818
  Receipt Date: 20220902
  Transmission Date: 20221027
  Serious: Yes (Death, Hospitalization)
  Sender: FDA-Public Use
  Company Number: IT-TEVA-2022-IT-2064390

PATIENT
  Age: 82 Year
  Sex: Male

DRUGS (10)
  1. CLOPIDOGREL [Suspect]
     Active Substance: CLOPIDOGREL BISULFATE
     Indication: Anticoagulant therapy
     Dosage: 75 MILLIGRAM DAILY;
     Route: 048
  2. ENOXAPARIN [Suspect]
     Active Substance: ENOXAPARIN
     Indication: Anticoagulant therapy
     Dosage: 2000
     Route: 065
  3. RAMIPRIL [Concomitant]
     Active Substance: RAMIPRIL
     Indication: Hypertension
     Route: 048
  4. BISOPROLOL [Concomitant]
     Active Substance: BISOPROLOL
     Indication: Hypertension
     Route: 048
  5. ATORVASTATIN [Concomitant]
     Active Substance: ATORVASTATIN
     Indication: Cardiac failure
     Route: 065
  6. PERINDOPRIL [Concomitant]
     Active Substance: PERINDOPRIL
     Indication: Hypertension
     Route: 065
  7. AMPICILLIN SODIUM\SULBACTAM SODIUM [Concomitant]
     Active Substance: AMPICILLIN SODIUM\SULBACTAM SODIUM
     Indication: Antibiotic therapy
     Dosage: THREE TIMES A DAY
     Route: 065
  8. Claritromicin [Concomitant]
     Indication: Antibiotic therapy
     Route: 065
  9. METHYLPREDNISOLONE [Concomitant]
     Active Substance: METHYLPREDNISOLONE
     Indication: Product used for unknown indication
     Route: 065
  10. FUROSEMIDE [Concomitant]
     Active Substance: FUROSEMIDE
     Indication: Product used for unknown indication
     Route: 065

REACTIONS (8)
  - Haematoma muscle [Fatal]
  - Cardiac arrest [Fatal]
  - Hypotension [Unknown]
  - Loss of consciousness [Unknown]
  - Haemoglobin decreased [Unknown]
  - Ecchymosis [Unknown]
  - Pulmonary oedema [Unknown]
  - Thrombocytopenia [Unknown]
